FAERS Safety Report 7056083-6 (Version None)
Quarter: 2010Q4

REPORT INFORMATION
  Report Type: 
  Country: None (occurrence: None)
  Receive Date: 20101021
  Receipt Date: 20100714
  Transmission Date: 20110411
  Serious: Yes (Death, Other)
  Sender: FDA-Public Use
  Company Number: GB-TEVA-252332ISR

PATIENT
  Age: 45 Year
  Sex: Female

DRUGS (4)
  1. VALPROIC ACID [Suspect]
     Indication: MOOD ALTERED
     Route: 048
  2. CLOZAPINE [Suspect]
     Indication: SCHIZOPHRENIA
     Route: 048
     Dates: start: 19941201
  3. HYOSCINE HBR HYT [Suspect]
     Indication: SALIVARY HYPERSECRETION
  4. TRIHEXYPHENIDYL HCL [Suspect]
     Indication: EXTRAPYRAMIDAL DISORDER
     Route: 048

REACTIONS (19)
  - ABDOMINAL COMPARTMENT SYNDROME [None]
  - ABDOMINAL DISTENSION [None]
  - ABDOMINAL PAIN [None]
  - BOWEL MOVEMENT IRREGULARITY [None]
  - COAGULOPATHY [None]
  - COLECTOMY [None]
  - CONSTIPATION [None]
  - DIABETES MELLITUS [None]
  - HAEMODYNAMIC INSTABILITY [None]
  - HYPOTENSION [None]
  - HYPOTHERMIA [None]
  - ILEOSTOMY [None]
  - INTESTINAL OBSTRUCTION [None]
  - LAPAROTOMY [None]
  - METABOLIC ACIDOSIS [None]
  - MULTI-ORGAN FAILURE [None]
  - PERITONITIS [None]
  - TACHYCARDIA [None]
  - VOLVULUS [None]
